FAERS Safety Report 7814983-0 (Version None)
Quarter: 2011Q4

REPORT INFORMATION
  Report Type: 
  Country: None (occurrence: None)
  Receive Date: 20111014
  Receipt Date: 20111010
  Transmission Date: 20120403
  Serious: Yes (Hospitalization)
  Sender: FDA-Public Use
  Company Number: US-GLAXOSMITHKLINE-A0930171A

PATIENT
  Age: 70 Year
  Sex: Female

DRUGS (7)
  1. AMLODIPINE [Concomitant]
  2. ARIXTRA [Suspect]
     Indication: THROMBOSIS
     Dosage: 8.4ML PER DAY
     Route: 058
     Dates: start: 20101201
  3. BENAZEPRIL HYDROCHLORIDE [Concomitant]
  4. METOPROLOL TARTRATE [Concomitant]
  5. LOVAZA [Concomitant]
  6. COUMADIN [Concomitant]
  7. PREVACID [Concomitant]

REACTIONS (7)
  - OEDEMA PERIPHERAL [None]
  - HEART RATE DECREASED [None]
  - THROMBOSIS [None]
  - INJECTION SITE SWELLING [None]
  - INJECTION SITE PAIN [None]
  - BLOOD PRESSURE INCREASED [None]
  - DIZZINESS [None]
